FAERS Safety Report 6110545-4 (Version None)
Quarter: 2009Q1

REPORT INFORMATION
  Report Type: 
  Country: None (occurrence: None)
  Receive Date: 20090310
  Receipt Date: 20090304
  Transmission Date: 20090719
  Serious: Yes (Hospitalization)
  Sender: FDA-Public Use
  Company Number: JP-B.I. PHARMACEUTICALS,INC./RIDGEFIELD-2009-BP-01826NB

PATIENT
  Sex: Male
  Weight: 50 kg

DRUGS (17)
  1. MICARDIS [Suspect]
     Indication: ESSENTIAL HYPERTENSION
     Dosage: 40MG
     Route: 048
     Dates: start: 20081112, end: 20090121
  2. ASPENON [Concomitant]
     Indication: ATRIAL FIBRILLATION
     Dosage: 40MG
     Route: 048
  3. URINORM [Concomitant]
     Indication: GOUT
     Dosage: 50MG
     Route: 048
  4. STANZOME OD [Concomitant]
     Indication: GASTRIC ULCER
     Dosage: 15MG
     Route: 048
  5. FERROMIA [Concomitant]
     Indication: ANAEMIA
     Dosage: 100MG
     Route: 048
  6. LIPITOR [Concomitant]
     Indication: LIPIDS ABNORMAL
     Dosage: 10MG
     Route: 048
  7. NOVOLIN R [Concomitant]
     Indication: TYPE 2 DIABETES MELLITUS
     Dosage: 12U
     Route: 058
  8. NOVOLIN R [Concomitant]
     Indication: TYPE 2 DIABETES MELLITUS
     Dosage: 6U
     Route: 058
  9. KAYEXALATE [Concomitant]
     Indication: DIABETIC NEPHROPATHY
     Dosage: 5G
  10. LASIX [Concomitant]
     Indication: ESSENTIAL HYPERTENSION
     Dosage: 40MG
     Route: 048
  11. LASIX [Concomitant]
     Indication: CARDIAC FAILURE CHRONIC
  12. THYRADIN S [Concomitant]
     Indication: THYROID DISORDER
     Dosage: 150MG
     Route: 048
  13. LUPRAC [Concomitant]
     Indication: CARDIAC FAILURE CHRONIC
     Dosage: 8MG
     Route: 048
  14. TANATRIL [Concomitant]
     Indication: ESSENTIAL HYPERTENSION
     Dosage: 10MG
     Route: 048
  15. ATELEC [Concomitant]
     Indication: ESSENTIAL HYPERTENSION
     Dosage: 20MG
     Route: 048
  16. NORVASC [Concomitant]
     Indication: ESSENTIAL HYPERTENSION
     Dosage: 10MG
     Route: 048
  17. ASPIRIN [Concomitant]
     Indication: MYOCARDIAL ISCHAEMIA
     Dosage: 200MG
     Route: 048

REACTIONS (6)
  - DECREASED APPETITE [None]
  - EOSINOPHIL COUNT INCREASED [None]
  - LYMPHADENOPATHY [None]
  - PYREXIA [None]
  - RASH [None]
  - STOMATITIS [None]
